FAERS Safety Report 16311894 (Version 1)
Quarter: 2019Q2

REPORT INFORMATION
  Report Type: Spontaneous
  Country: US (occurrence: US)
  Receive Date: 20190514
  Receipt Date: 20190514
  Transmission Date: 20190711
  Serious: No
  Sender: FDA-Public Use
  Company Number: US-009507513-1905USA004916

PATIENT
  Sex: Female
  Weight: 81.63 kg

DRUGS (1)
  1. PRINIVIL [Suspect]
     Active Substance: LISINOPRIL
     Indication: HYPERTENSION
     Dosage: 20 MILLIGRAM, ONCE A DAY
     Route: 048

REACTIONS (3)
  - Pruritus [Unknown]
  - Erythema [Unknown]
  - Drug hypersensitivity [Unknown]
